FAERS Safety Report 26092991 (Version 1)
Quarter: 2025Q4

REPORT INFORMATION
  Report Type: Report from Study
  Country: EU (occurrence: EU)
  Receive Date: 20251126
  Receipt Date: 20251126
  Transmission Date: 20260118
  Serious: Yes (Other)
  Sender: ROCHE
  Company Number: EU-ROCHE-10000442622

PATIENT

DRUGS (2)
  1. VISMODEGIB [Suspect]
     Active Substance: VISMODEGIB
     Indication: Trichoblastic carcinoma
     Route: 065
  2. SONIDEGIB [Suspect]
     Active Substance: SONIDEGIB
     Indication: Trichoblastic carcinoma
     Route: 065

REACTIONS (5)
  - Off label use [Unknown]
  - Dysgeusia [Unknown]
  - Muscle spasms [Unknown]
  - Decreased appetite [Unknown]
  - Alopecia [Unknown]
